FAERS Safety Report 7041360-5 (Version None)
Quarter: 2010Q4

REPORT INFORMATION
  Report Type: 
  Country: None (occurrence: None)
  Receive Date: 20101008
  Receipt Date: 20100930
  Transmission Date: 20110411
  Serious: Yes (Hospitalization)
  Sender: FDA-Public Use
  Company Number: JPI-P-012439

PATIENT
  Age: 50 Year
  Sex: Female

DRUGS (16)
  1. XYREM [Suspect]
     Indication: FIBROMYALGIA
     Dosage: 6 GM (3 GM, 2 IN 1 D), ORAL, ORAL, 6 GM (3 GM, 2 IN 1 D), ORAL
     Route: 048
     Dates: start: 20061121, end: 20100926
  2. XYREM [Suspect]
     Indication: NARCOLEPSY
     Dosage: 6 GM (3 GM, 2 IN 1 D), ORAL, ORAL, 6 GM (3 GM, 2 IN 1 D), ORAL
     Route: 048
     Dates: start: 20061121, end: 20100926
  3. XYREM [Suspect]
     Indication: RESTLESS LEGS SYNDROME
     Dosage: 6 GM (3 GM, 2 IN 1 D), ORAL, ORAL, 6 GM (3 GM, 2 IN 1 D), ORAL
     Route: 048
     Dates: start: 20061121, end: 20100926
  4. XYREM [Suspect]
     Indication: FIBROMYALGIA
     Dosage: 6 GM (3 GM, 2 IN 1 D), ORAL, ORAL, 6 GM (3 GM, 2 IN 1 D), ORAL
     Route: 048
     Dates: start: 20051123
  5. XYREM [Suspect]
     Indication: NARCOLEPSY
     Dosage: 6 GM (3 GM, 2 IN 1 D), ORAL, ORAL, 6 GM (3 GM, 2 IN 1 D), ORAL
     Route: 048
     Dates: start: 20051123
  6. XYREM [Suspect]
     Indication: RESTLESS LEGS SYNDROME
     Dosage: 6 GM (3 GM, 2 IN 1 D), ORAL, ORAL, 6 GM (3 GM, 2 IN 1 D), ORAL
     Route: 048
     Dates: start: 20051123
  7. ROPINIROLE [Concomitant]
  8. RALOXIFENE HCL [Concomitant]
  9. ACETAMINOPHEN AND ROPXYPHENE [Concomitant]
  10. LEVOTHYROXINE [Concomitant]
  11. FAMOTIDINE [Concomitant]
  12. ARMODAFINIL [Concomitant]
  13. SIMVASTATIN [Concomitant]
  14. FLUTICASONE AND SALMETEROL [Concomitant]
  15. ALBUTEROL SULFATE [Concomitant]
  16. GABAPENTIN [Concomitant]

REACTIONS (6)
  - ARTERIAL OCCLUSIVE DISEASE [None]
  - BLOOD SODIUM DECREASED [None]
  - IRRITABILITY [None]
  - MEMORY IMPAIRMENT [None]
  - MOOD SWINGS [None]
  - WEIGHT DECREASED [None]
